FAERS Safety Report 16993898 (Version 1)
Quarter: 2019Q4

REPORT INFORMATION
  Report Type: Report from Study
  Country: EG (occurrence: EG)
  Receive Date: 20191105
  Receipt Date: 20191105
  Transmission Date: 20200122
  Serious: Yes (Other)
  Sender: FDA-Public Use
  Company Number: EG-BAYER-2019-129157

PATIENT
  Age: 18 Year
  Sex: Female

DRUGS (10)
  1. BETAFERON [Suspect]
     Active Substance: INTERFERON BETA-1B
     Indication: MULTIPLE SCLEROSIS
     Dosage: UNK
     Dates: start: 20190630
  2. BETAFERON [Suspect]
     Active Substance: INTERFERON BETA-1B
     Indication: MULTIPLE SCLEROSIS
     Dosage: UNK
     Dates: start: 20190715
  3. PREGAVALEX [Concomitant]
  4. BETAFERON [Suspect]
     Active Substance: INTERFERON BETA-1B
     Indication: MULTIPLE SCLEROSIS
     Dosage: UNK
     Dates: start: 20190624
  5. VI D3 [Concomitant]
     Active Substance: CHOLECALCIFEROL
  6. BETAFERON [Suspect]
     Active Substance: INTERFERON BETA-1B
     Indication: MULTIPLE SCLEROSIS
     Dosage: UNK
     Dates: start: 20190723
  7. BETAFERON [Suspect]
     Active Substance: INTERFERON BETA-1B
     Indication: MULTIPLE SCLEROSIS
     Dosage: 1 ML, QOD
     Route: 058
     Dates: start: 20190624, end: 20190926
  8. VITAMIN D [VITAMIN D NOS] [Concomitant]
     Active Substance: VITAMIN D NOS
     Dosage: UNK
     Route: 042
  9. OMEGA 3 [DOCOSAHEXAENOIC ACID;EICOSAPENTAENOIC ACID] [Concomitant]
     Active Substance: DOCONEXENT\ICOSAPENT
  10. CORTISONE [Concomitant]
     Active Substance: CORTISONE
     Dosage: 1G EQUIVALENT TO 17 DOSES
     Route: 042

REACTIONS (24)
  - Heart rate increased [Recovering/Resolving]
  - Angina pectoris [Recovering/Resolving]
  - Neck pain [Recovered/Resolved]
  - Pain in extremity [Recovering/Resolving]
  - Eye inflammation [Recovering/Resolving]
  - Decreased activity [Recovering/Resolving]
  - Multiple sclerosis [None]
  - Diplopia [Not Recovered/Not Resolved]
  - Injection site reaction [Recovered/Resolved]
  - Multiple sclerosis [None]
  - Vision blurred [Recovering/Resolving]
  - Bone pain [Recovering/Resolving]
  - Visual impairment [Recovering/Resolving]
  - Diplopia [Recovering/Resolving]
  - Injection site discolouration [Recovered/Resolved]
  - Drug ineffective [None]
  - Injection site pain [None]
  - Fatigue [Recovering/Resolving]
  - Multiple sclerosis [Recovering/Resolving]
  - Visual impairment [Recovered/Resolved]
  - Back pain [Recovering/Resolving]
  - Drug hypersensitivity [None]
  - Vision blurred [Recovered/Resolved]
  - Eye disorder [None]

NARRATIVE: CASE EVENT DATE: 201906
